FAERS Safety Report 25128026 (Version 2)
Quarter: 2025Q2

REPORT INFORMATION
  Report Type: Spontaneous
  Country: CN (occurrence: CN)
  Receive Date: 20250327
  Receipt Date: 20250402
  Transmission Date: 20250716
  Serious: Yes (Hospitalization)
  Sender: ROCHE
  Company Number: CN-ROCHE-10000242498

PATIENT
  Age: 62 Year
  Sex: Female

DRUGS (2)
  1. ALECTINIB [Suspect]
     Active Substance: ALECTINIB
     Indication: Non-small cell lung cancer
     Route: 065
  2. CERITINIB [Concomitant]
     Active Substance: CERITINIB
     Route: 048

REACTIONS (2)
  - Intestinal ulcer [Recovered/Resolved]
  - Colitis [Recovered/Resolved]
